FAERS Safety Report 17235520 (Version 1)
Quarter: 2020Q1

REPORT INFORMATION
  Report Type: Spontaneous
  Country: US (occurrence: US)
  Receive Date: 20200103
  Receipt Date: 20200103
  Transmission Date: 20200409
  Serious: Yes (Hospitalization)
  Sender: FDA-Public Use
  Company Number: None

PATIENT
  Age: 78 Year
  Sex: Male
  Weight: 69.75 kg

DRUGS (13)
  1. VERZENIO [Suspect]
     Active Substance: ABEMACICLIB
     Indication: METASTASES TO BREAST
     Route: 048
     Dates: start: 20190920, end: 20191211
  2. SULFADIAZINE. [Concomitant]
     Active Substance: SULFADIAZINE
  3. TAMOXIFEN [Concomitant]
     Active Substance: TAMOXIFEN
  4. DORZOLAMIDE [Concomitant]
     Active Substance: DORZOLAMIDE
  5. HYDROCODONE/ACETAMINOPHEN [Concomitant]
     Active Substance: ACETAMINOPHEN\HYDROCODONE
  6. PRESERVISION AREDS 2 [Concomitant]
     Active Substance: MINERALS\VITAMINS
  7. MIRALAX [Concomitant]
     Active Substance: POLYETHYLENE GLYCOL 3350
  8. SENNA LAXATIVE [Concomitant]
     Active Substance: SENNOSIDES
  9. LATANOPROST. [Concomitant]
     Active Substance: LATANOPROST
  10. GABAPENTIN. [Concomitant]
     Active Substance: GABAPENTIN
  11. COMBIGAN [Concomitant]
     Active Substance: BRIMONIDINE TARTRATE\TIMOLOL MALEATE
  12. EYLEA [Concomitant]
     Active Substance: AFLIBERCEPT
  13. FENTANYL. [Concomitant]
     Active Substance: FENTANYL

REACTIONS (1)
  - Dyspnoea [None]

NARRATIVE: CASE EVENT DATE: 20191211
